FAERS Safety Report 4881598-6 (Version None)
Quarter: 2005Q4

REPORT INFORMATION
  Report Type: 
  Country: None (occurrence: None)
  Receive Date: 20051209
  Receipt Date: 20050823
  Transmission Date: 20060501
  Serious: Yes (Death)
  Sender: FDA-Public Use
  Company Number: USA-2005-0021088

PATIENT
  Age: 34 Year
  Sex: Male
  Weight: 122 kg

DRUGS (10)
  1. OXYCONTIN [Suspect]
  2. ALPRAZOLAM [Suspect]
  3. ACETAMINOPHEN [Suspect]
  4. CAFFEINE (CAFFEINE) [Suspect]
  5. CARISOPRODOL (CARISOPRODOL) [Suspect]
  6. HYDROCODONE BITARTRATE [Suspect]
  7. OXAZEPAM [Suspect]
  8. TEMAZEPAM [Suspect]
  9. HYDROMORPHONE HCL [Suspect]
  10. MEPROBAMATE [Suspect]

REACTIONS (1)
  - ACCIDENTAL OVERDOSE [None]
